FAERS Safety Report 8769504 (Version 1)
Quarter: 2012Q4

REPORT INFORMATION
  Report Type: Report from Study
  Country: FR (occurrence: FR)
  Receive Date: 20120905
  Receipt Date: 20120905
  Transmission Date: 20130627
  Serious: Yes (Hospitalization)
  Sender: FDA-Public Use
  Company Number: PHHO2012FR012797

PATIENT
  Age: 74 Year
  Sex: Male

DRUGS (3)
  1. RAD 666 / RAD 001A [Suspect]
     Indication: RENAL TRANSPLANT
     Dosage: 1.5 mg, BID
     Route: 048
  2. CELLCEPT [Concomitant]
     Indication: RENAL TRANSPLANT
     Dosage: 250 mg, BID
     Route: 048
  3. SOLUPRED [Concomitant]
     Indication: RENAL TRANSPLANT
     Dosage: 10 mg, UNK
     Route: 048

REACTIONS (3)
  - Wound evisceration [Not Recovered/Not Resolved]
  - Leukopenia [Not Recovered/Not Resolved]
  - Neutropenia [Not Recovered/Not Resolved]
